FAERS Safety Report 6885118-6 (Version None)
Quarter: 2010Q3

REPORT INFORMATION
  Report Type: 
  Country: None (occurrence: None)
  Receive Date: 20100729
  Receipt Date: 20071207
  Transmission Date: 20110219
  Serious: Yes (Other)
  Sender: FDA-Public Use
  Company Number: US-PFIZER INC-2007103416

PATIENT
  Age: 55 Year
  Sex: Male

DRUGS (4)
  1. CELEBREX [Suspect]
  2. LIPITOR [Concomitant]
  3. ACETYLSALICYLIC ACID SRT [Concomitant]
  4. FISH OIL [Concomitant]

REACTIONS (1)
  - MYOCARDIAL INFARCTION [None]
